FAERS Safety Report 6087139-2 (Version None)
Quarter: 2009Q1

REPORT INFORMATION
  Report Type: 
  Country: None (occurrence: None)
  Receive Date: 20090223
  Receipt Date: 20090213
  Transmission Date: 20090719
  Serious: Yes (Death, Hospitalization)
  Sender: FDA-Public Use
  Company Number: DE-AMGEN-UK329127

PATIENT
  Sex: Male
  Weight: 85 kg

DRUGS (7)
  1. VECTIBIX [Suspect]
     Indication: COLORECTAL CANCER
     Route: 042
     Dates: start: 20081114, end: 20090102
  2. METROGEL [Concomitant]
     Route: 065
     Dates: start: 20081124
  3. FENTANYL [Concomitant]
     Route: 065
     Dates: start: 20081217
  4. DEXAMETHASONE [Concomitant]
     Route: 065
     Dates: start: 20081217
  5. ACTIQ (CEPHALON INC) [Concomitant]
     Route: 048
     Dates: start: 20090113
  6. HALOPERIDOL [Concomitant]
     Route: 065
     Dates: start: 20090113
  7. NULYTELY [Concomitant]
     Route: 065
     Dates: start: 20090108

REACTIONS (3)
  - ABDOMINAL PAIN [None]
  - DEATH [None]
  - GENERAL PHYSICAL HEALTH DETERIORATION [None]
